FAERS Safety Report 9929072 (Version 1)
Quarter: 2014Q1

REPORT INFORMATION
  Report Type: Report from Study
  Country: US (occurrence: US)
  Receive Date: 20140227
  Receipt Date: 20140227
  Transmission Date: 20141002
  Serious: Yes (Hospitalization, Other)
  Sender: FDA-Public Use
  Company Number: US-PFIZER INC-2014054705

PATIENT
  Sex: 0

DRUGS (2)
  1. IBUPROFEN [Suspect]
     Indication: INFLAMMATORY PAIN
     Dosage: UNK
     Route: 065
  2. INDOMETHACIN [Suspect]
     Dosage: UNK
     Route: 065

REACTIONS (1)
  - Supraventricular tachycardia [Unknown]
